FAERS Safety Report 5655506-4 (Version None)
Quarter: 2008Q1

REPORT INFORMATION
  Report Type: 
  Country: None (occurrence: None)
  Receive Date: 20080307
  Receipt Date: 20080227
  Transmission Date: 20080703
  Serious: Yes (Other)
  Sender: FDA-Public Use
  Company Number: US-ELI_LILLY_AND_COMPANY-US200802006404

PATIENT
  Age: 59 Year
  Sex: Male

DRUGS (1)
  1. HUMULIN 70/30 [Suspect]
     Dosage: 40 U, 2/D

REACTIONS (6)
  - CEREBROVASCULAR ACCIDENT [None]
  - GAIT DISTURBANCE [None]
  - HYPOAESTHESIA [None]
  - MONOPARESIS [None]
  - PARAESTHESIA [None]
  - VISUAL ACUITY REDUCED [None]
